FAERS Safety Report 12943164 (Version 1)
Quarter: 2016Q4

REPORT INFORMATION
  Report Type: Spontaneous
  Country: None (occurrence: DE)
  Receive Date: 20161115
  Receipt Date: 20161115
  Transmission Date: 20170207
  Serious: Yes (Other)
  Sender: FDA-Public Use
  Company Number: DE-MEDAC PHARMA, INC.-1059544

PATIENT
  Sex: Male

DRUGS (2)
  1. METEX [Suspect]
     Active Substance: METFORMIN HYDROCHLORIDE
     Route: 048
  2. FOLIC ACID. [Concomitant]
     Active Substance: FOLIC ACID

REACTIONS (2)
  - Loss of consciousness [Unknown]
  - Dizziness [Unknown]
